FAERS Safety Report 12115336 (Version 1)
Quarter: 2016Q1

REPORT INFORMATION
  Report Type: Report from Study
  Country: US (occurrence: US)
  Receive Date: 20160225
  Receipt Date: 20160225
  Transmission Date: 20160526
  Serious: Yes (Life-Threatening)
  Sender: FDA-Public Use
  Company Number: PHEH2016US004369

PATIENT
  Age: 61 Year
  Sex: Female

DRUGS (1)
  1. TEGRETOL [Suspect]
     Active Substance: CARBAMAZEPINE
     Indication: SUICIDAL BEHAVIOUR
     Dosage: 200 MG, UNK
     Route: 065

REACTIONS (2)
  - Suicidal behaviour [Unknown]
  - Product use issue [Unknown]

NARRATIVE: CASE EVENT DATE: 20160222
